FAERS Safety Report 14260679 (Version 1)
Quarter: 2017Q4

REPORT INFORMATION
  Report Type: Spontaneous
  Country: DE (occurrence: DE)
  Receive Date: 20171207
  Receipt Date: 20171207
  Transmission Date: 20180321
  Serious: Yes (Other)
  Sender: FDA-Public Use
  Company Number: DE-MYLANLABS-2017M1077057

PATIENT
  Age: 40 Year
  Sex: Female

DRUGS (2)
  1. NIFEDIPINE. [Suspect]
     Active Substance: NIFEDIPINE
     Indication: TOCOLYSIS
     Dosage: UNK
     Route: 048
  2. CELESTAN /00008501/ [Suspect]
     Active Substance: BETAMETHASONE
     Indication: PROPHYLAXIS
     Dosage: 8 MG, TID

REACTIONS (4)
  - Exposure during pregnancy [Unknown]
  - Ectopic pregnancy [Unknown]
  - Twin pregnancy [Unknown]
  - Live birth [Unknown]
